FAERS Safety Report 8548820-6 (Version None)
Quarter: 2012Q3

REPORT INFORMATION
  Report Type: 
  Country: None (occurrence: None)
  Receive Date: 20120730
  Receipt Date: 20120719
  Transmission Date: 20120928
  Serious: Yes (Other)
  Sender: FDA-Public Use
  Company Number: CA-BRISTOL-MYERS SQUIBB COMPANY-16706699

PATIENT
  Age: 50 Year
  Sex: Female

DRUGS (4)
  1. IMITREX [Concomitant]
  2. ORENCIA [Suspect]
     Indication: RHEUMATOID ARTHRITIS
     Dosage: LAST INFUSION ON 19-JUL-2012. INF:11
     Route: 042
     Dates: start: 20111110
  3. ADVAIR DISKUS 100/50 [Concomitant]
  4. SYNTHROID [Concomitant]

REACTIONS (1)
  - UVEITIS [None]
